FAERS Safety Report 11052949 (Version 2)
Quarter: 2015Q2

REPORT INFORMATION
  Report Type: Spontaneous
  Country: JP (occurrence: JP)
  Receive Date: 20150421
  Receipt Date: 20150624
  Transmission Date: 20150821
  Serious: Yes (Other)
  Sender: FDA-Public Use
  Company Number: JP-GLAXOSMITHKLINE-JP2015JPN051984

PATIENT
  Age: 76 Year
  Sex: Male

DRUGS (1)
  1. FLUTIDE DISKUS [Suspect]
     Active Substance: FLUTICASONE PROPIONATE
     Indication: ASTHMA
     Dosage: 200 ?G, BID
     Route: 055

REACTIONS (1)
  - Oesophageal candidiasis [Not Recovered/Not Resolved]
